FAERS Safety Report 8359759-3 (Version None)
Quarter: 2012Q2

REPORT INFORMATION
  Report Type: 
  Country: None (occurrence: None)
  Receive Date: 20120514
  Receipt Date: 20120514
  Transmission Date: 20120825
  Serious: Yes (Death, Life-Threatening, Hospitalization, Disabling, Congenital Anomaly, Other)
  Sender: FDA-Public Use
  Company Number: None

PATIENT
  Age: 68 Year
  Sex: Female
  Weight: 54.4316 kg

DRUGS (6)
  1. ZYPREXA [Suspect]
     Indication: SCHIZOPHRENIA
     Dosage: 1 Q EVENING
     Dates: start: 20080201, end: 20100201
  2. ASPIRIN [Concomitant]
  3. AMLODIPINE BESYLATE [Concomitant]
  4. OMEPRAZOLE [Concomitant]
  5. ARICEPT [Suspect]
     Indication: DEMENTIA
     Dosage: 1 Q EVENING
  6. CITALOPRAM HYDROBROMIDE [Concomitant]

REACTIONS (12)
  - SYNCOPE [None]
  - VOMITING [None]
  - HAEMORRHAGE [None]
  - ASTHENIA [None]
  - CHEST PAIN [None]
  - CEREBROVASCULAR ACCIDENT [None]
  - TARDIVE DYSKINESIA [None]
  - PAIN IN EXTREMITY [None]
  - MALAISE [None]
  - DIZZINESS [None]
  - HICCUPS [None]
  - GASTROINTESTINAL DISORDER [None]
